FAERS Safety Report 9984911 (Version 1)
Quarter: 2014Q1

REPORT INFORMATION
  Report Type: Report from Study
  Country: US (occurrence: US)
  Receive Date: 20140307
  Receipt Date: 20140307
  Transmission Date: 20141002
  Serious: No
  Sender: FDA-Public Use
  Company Number: US-ABBVIE-14P-163-1186215-00

PATIENT
  Age: 60 Year
  Sex: Female

DRUGS (4)
  1. HUMIRA [Suspect]
     Indication: CROHN^S DISEASE
     Route: 058
     Dates: start: 20131108, end: 20131108
  2. HUMIRA [Suspect]
     Route: 058
     Dates: start: 20131122, end: 20131122
  3. HUMIRA [Suspect]
     Route: 058
     Dates: start: 20131206, end: 20131206
  4. HUMIRA [Suspect]
     Route: 058
     Dates: end: 201401

REACTIONS (4)
  - Back pain [Not Recovered/Not Resolved]
  - Drug ineffective [Not Recovered/Not Resolved]
  - Headache [Not Recovered/Not Resolved]
  - Vomiting [Not Recovered/Not Resolved]
